FAERS Safety Report 18210056 (Version 2)
Quarter: 2021Q2

REPORT INFORMATION
  Report Type: Spontaneous
  Country: CA (occurrence: CA)
  Receive Date: 20200829
  Receipt Date: 20210505
  Transmission Date: 20210717
  Serious: Yes (Other)
  Sender: FDA-Public Use
  Company Number: CA-TEVA-2020-CA-1818057

PATIENT
  Age: 65 Year
  Sex: Female

DRUGS (10)
  1. MOCLOBEMIDE [Concomitant]
     Active Substance: MOCLOBEMIDE
  2. QUETIAPINE. [Suspect]
     Active Substance: QUETIAPINE
     Indication: BIPOLAR I DISORDER
     Route: 065
  3. QUETIAPINE. [Suspect]
     Active Substance: QUETIAPINE
     Indication: ANXIETY DISORDER
  4. PROPRANOLOL [Concomitant]
     Active Substance: PROPRANOLOL HYDROCHLORIDE
  5. LAMOTRIGINE. [Suspect]
     Active Substance: LAMOTRIGINE
     Indication: BIPOLAR I DISORDER
     Route: 065
  6. VALPROATE SEMISODIUM [Concomitant]
     Active Substance: DIVALPROEX SODIUM
  7. DIVALPROEX SODIUM. [Concomitant]
     Active Substance: DIVALPROEX SODIUM
  8. VALPROIC ACID. [Concomitant]
     Active Substance: VALPROIC ACID
  9. CLONAZEPAM. [Concomitant]
     Active Substance: CLONAZEPAM
  10. PANTOPRAZOLE [Suspect]
     Active Substance: PANTOPRAZOLE
     Indication: DYSPEPSIA
     Route: 065

REACTIONS (6)
  - Blepharospasm [Unknown]
  - Mass [Unknown]
  - Drug ineffective [Unknown]
  - Psychotic disorder [Unknown]
  - Quality of life decreased [Unknown]
  - Balance disorder [Unknown]
